FAERS Safety Report 6702161-8 (Version None)
Quarter: 2010Q2

REPORT INFORMATION
  Report Type: 
  Country: None (occurrence: None)
  Receive Date: 20100429
  Receipt Date: 20100414
  Transmission Date: 20101027
  Serious: Yes (Hospitalization)
  Sender: FDA-Public Use
  Company Number: US-ROCHE-551448

PATIENT
  Age: 72 Year
  Sex: Female

DRUGS (4)
  1. BONIVA [Suspect]
     Indication: OSTEOPOROSIS
     Route: 048
     Dates: start: 20070301, end: 20080301
  2. CALCIUM [Concomitant]
  3. VITAMIN C [Concomitant]
  4. MULTI-VITAMIN [Concomitant]

REACTIONS (5)
  - DYSPHAGIA [None]
  - NECK PAIN [None]
  - PAIN IN JAW [None]
  - UNEVALUABLE EVENT [None]
  - VISUAL IMPAIRMENT [None]
